FAERS Safety Report 9357828 (Version 1)
Quarter: 2013Q2

REPORT INFORMATION
  Report Type: Spontaneous
  Country: US (occurrence: US)
  Receive Date: 20130620
  Receipt Date: 20130620
  Transmission Date: 20140414
  Serious: No
  Sender: FDA-Public Use
  Company Number: US-US-EMD SERONO, INC.-7042353

PATIENT
  Sex: Male

DRUGS (4)
  1. REBIF [Suspect]
     Indication: PRODUCT USED FOR UNKNOWN INDICATION
     Route: 058
     Dates: start: 20101206, end: 2012
  2. IBUPROFEN [Concomitant]
     Indication: PREMEDICATION
  3. TYLENOL                            /00020001/ [Concomitant]
     Indication: PREMEDICATION
  4. MORPHINE                           /00036303/ [Concomitant]
     Indication: BACK PAIN

REACTIONS (4)
  - Upper-airway cough syndrome [Unknown]
  - Nausea [Unknown]
  - Irritable bowel syndrome [Unknown]
  - Abdominal pain upper [Recovering/Resolving]
